FAERS Safety Report 8393521-0 (Version None)
Quarter: 2012Q2

REPORT INFORMATION
  Report Type: 
  Country: None (occurrence: None)
  Receive Date: 20120529
  Receipt Date: 20120516
  Transmission Date: 20120825
  Serious: Yes (Death)
  Sender: FDA-Public Use
  Company Number: GB-MYLANLABS-2012S1010011

PATIENT
  Age: 67 Year
  Sex: Male
  Weight: 85 kg

DRUGS (8)
  1. EPIRUBICIN [Suspect]
     Indication: GASTRIC CANCER
     Route: 042
     Dates: start: 20110922
  2. BEVACIZUMAB [Suspect]
     Route: 042
     Dates: start: 20111117
  3. CAPECITABINE [Suspect]
     Route: 048
     Dates: start: 20111208
  4. CISPLATIN [Suspect]
     Route: 042
     Dates: start: 20111117
  5. CISPLATIN [Suspect]
     Indication: GASTRIC CANCER
     Route: 042
     Dates: start: 20110922
  6. EPIRUBICIN [Suspect]
     Route: 042
     Dates: start: 20111117
  7. CAPECITABINE [Suspect]
     Indication: GASTRIC CANCER
     Route: 048
     Dates: start: 20110922
  8. BEVACIZUMAB [Suspect]
     Indication: GASTRIC CANCER
     Route: 042
     Dates: start: 20110922

REACTIONS (5)
  - RESPIRATORY DISORDER [None]
  - ATRIAL FIBRILLATION [None]
  - GASTROINTESTINAL ANASTOMOTIC LEAK [None]
  - POST PROCEDURAL HAEMORRHAGE [None]
  - DIAPHRAGMATIC HERNIA [None]
